FAERS Safety Report 4531251-3 (Version None)
Quarter: 2004Q4

REPORT INFORMATION
  Report Type: 
  Country: None (occurrence: None)
  Receive Date: 20041126
  Receipt Date: 20040105
  Transmission Date: 20050328
  Serious: No
  Sender: FDA-Public Use
  Company Number: APP200400023(0)

PATIENT
  Sex: 0

DRUGS (11)
  1. FLUOROURACIL INJ [Suspect]
     Indication: GASTRIC CANCER
     Dosage: 362 MG (362 MG, 1 IN 1IN 1 D), INTRAVENOUS
     Route: 042
     Dates: start: 20030818, end: 20030825
  2. TEZACITABINE [Suspect]
     Indication: GASTRIC CANCER
     Dosage: (362 MG, ONCE), INTRAVENOUS
     Route: 042
     Dates: start: 20030818, end: 20030818
  3. TRAZODONE HCL [Concomitant]
  4. PROTONIX [Concomitant]
  5. COMPAZINE (PROCHOLORPERAZINE EDISYLATE) [Concomitant]
  6. DALAMAN (FLURAZEPAM HYDROCHLORIDE) [Concomitant]
  7. ATIVAN [Concomitant]
  8. HYDROCODONE (HYDROCODONE) [Concomitant]
  9. KYTRIL [Concomitant]
  10. TOLINASE (TOLAZAMIDE) [Concomitant]
  11. MULTIVITAMIN (MULTIVITAMINS) [Concomitant]

REACTIONS (1)
  - NEUTROPENIA [None]
